FAERS Safety Report 10680639 (Version 2)
Quarter: 2015Q4

REPORT INFORMATION
  Report Type: Spontaneous
  Country: US (occurrence: US)
  Receive Date: 20141229
  Receipt Date: 20151228
  Transmission Date: 20160304
  Serious: Yes (Hospitalization)
  Sender: FDA-Public Use
  Company Number: US-SA-2014SA118719

PATIENT
  Age: 56 Year
  Sex: Female
  Weight: 79.4 kg

DRUGS (15)
  1. LIPITOR [Concomitant]
     Active Substance: ATORVASTATIN CALCIUM
     Dosage: LAST DOSE: 21-JUN
  2. VERAPAMIL [Concomitant]
     Active Substance: VERAPAMIL HYDROCHLORIDE
     Dosage: LAST DOSE: 22-JUN
  3. AMBIEN [Concomitant]
     Active Substance: ZOLPIDEM TARTRATE
     Route: 048
  4. IMDUR [Concomitant]
     Active Substance: ISOSORBIDE MONONITRATE
     Dosage: PATCH
  5. PLAVIX [Suspect]
     Active Substance: CLOPIDOGREL BISULFATE
     Indication: ANGINA PECTORIS
     Route: 048
     Dates: start: 20031009, end: 20050622
  6. ASPIRIN. [Concomitant]
     Active Substance: ASPIRIN
  7. IBUPROFEN. [Concomitant]
     Active Substance: IBUPROFEN
     Indication: PAIN
  8. NITRO PATCH [Concomitant]
     Active Substance: NITROGLYCERIN
     Dosage: 1/2 PATCH PER DAY
  9. PLAVIX [Suspect]
     Active Substance: CLOPIDOGREL BISULFATE
     Indication: CORONARY ARTERY DISEASE
     Route: 048
     Dates: start: 20031009, end: 20050622
  10. ASA [Concomitant]
     Active Substance: ASPIRIN
  11. PLAVIX [Suspect]
     Active Substance: CLOPIDOGREL BISULFATE
     Indication: MYOCARDIAL INFARCTION
     Route: 048
     Dates: start: 20031009, end: 20050622
  12. LASIX [Concomitant]
     Active Substance: FUROSEMIDE
  13. ZETIA [Concomitant]
     Active Substance: EZETIMIBE
     Dosage: LAST DOSE: 21-JUN
  14. NITROQUICK [Concomitant]
     Active Substance: NITROGLYCERIN
  15. NADOLOL. [Concomitant]
     Active Substance: NADOLOL
     Dosage: LAST DOSE: 21-JUN

REACTIONS (1)
  - Gastrointestinal haemorrhage [Unknown]

NARRATIVE: CASE EVENT DATE: 20050622
